FAERS Safety Report 10547815 (Version 1)
Quarter: 2014Q4

REPORT INFORMATION
  Report Type: Spontaneous
  Country: US (occurrence: None)
  Receive Date: 20141024
  Receipt Date: 20141024
  Transmission Date: 20150529
  Serious: Yes (Hospitalization)
  Sender: FDA-Public Use
  Company Number: None

PATIENT
  Age: 8 Year
  Sex: Female
  Weight: 31.75 kg

DRUGS (1)
  1. AZITHROMYCIN [Suspect]
     Active Substance: AZITHROMYCIN ANHYDROUS
     Indication: SINUSITIS
     Dosage: 200MG/5ML?2 TEAS. 1ST DAY?TAKEN BY MONTH
     Route: 048
     Dates: start: 20141015, end: 20141016

REACTIONS (7)
  - Seizure [None]
  - Abdominal pain upper [None]
  - Vomiting [None]
  - Urinary incontinence [None]
  - Feeling of body temperature change [None]
  - Loss of consciousness [None]
  - Muscle twitching [None]

NARRATIVE: CASE EVENT DATE: 20141016
